FAERS Safety Report 18108009 (Version 1)
Quarter: 2020Q3

REPORT INFORMATION
  Report Type: Spontaneous
  Country: PT (occurrence: PT)
  Receive Date: 20200804
  Receipt Date: 20200804
  Transmission Date: 20201103
  Serious: Yes (Other)
  Sender: FDA-Public Use
  Company Number: PT-HIKMA PHARMACEUTICALS USA INC.-PT-H14001-20-51833

PATIENT
  Age: 38 Year
  Sex: Female

DRUGS (1)
  1. CEFOXITIN [Suspect]
     Active Substance: CEFOXITIN SODIUM
     Indication: GYNAECOLOGICAL DISORDER PROPHYLAXIS
     Dosage: UNKNOWN
     Route: 065
     Dates: start: 2016, end: 2016

REACTIONS (3)
  - Presyncope [Recovered/Resolved]
  - Asthenia [Recovered/Resolved]
  - Malaise [Recovered/Resolved]

NARRATIVE: CASE EVENT DATE: 2016
